FAERS Safety Report 14346866 (Version 2)
Quarter: 2018Q1

REPORT INFORMATION
  Report Type: Spontaneous
  Country: DE (occurrence: DE)
  Receive Date: 20180103
  Receipt Date: 20180118
  Transmission Date: 20180509
  Serious: Yes (Other)
  Sender: FDA-Public Use
  Company Number: DE-BAYER-2018-001188

PATIENT
  Age: 19 Year
  Sex: Female

DRUGS (1)
  1. GADOVIST [Suspect]
     Active Substance: GADOBUTROL
     Dosage: 4.5 ML, ONCE
     Route: 042
     Dates: start: 20171229, end: 20171229

REACTIONS (4)
  - Nausea [Recovered/Resolved]
  - Seizure [Recovered/Resolved]
  - Cough [Recovered/Resolved]
  - Vomiting [Recovered/Resolved]

NARRATIVE: CASE EVENT DATE: 20171229
